FAERS Safety Report 9743612 (Version 1)
Quarter: 2013Q4

REPORT INFORMATION
  Report Type: Spontaneous
  Country: IT (occurrence: IT)
  Receive Date: 20131210
  Receipt Date: 20131210
  Transmission Date: 20140711
  Serious: Yes (Other)
  Sender: FDA-Public Use
  Company Number: IT-TEVA-448243ISR

PATIENT
  Age: 60 Year
  Sex: Male

DRUGS (1)
  1. AMOXICILLIN TRIHYDRATE/CLAVULANATE POTASSIUM [Suspect]
     Indication: TOOTHACHE
     Route: 048
     Dates: start: 20131121, end: 20131121

REACTIONS (2)
  - Circulatory collapse [Recovered/Resolved]
  - Syncope [Recovered/Resolved]
